FAERS Safety Report 15425486 (Version 1)
Quarter: 2018Q3

REPORT INFORMATION
  Report Type: Report from Study
  Country: JP (occurrence: JP)
  Receive Date: 20180925
  Receipt Date: 20180925
  Transmission Date: 20181010
  Serious: Yes (Other)
  Sender: FDA-Public Use
  Company Number: JP-SAKK-2018SA258470AA

PATIENT
  Age: 38 Year
  Sex: Female

DRUGS (4)
  1. AFLIBERCEPT [Suspect]
     Active Substance: AFLIBERCEPT
     Indication: COLON CANCER
     Route: 041
  2. IRINOTECAN [Concomitant]
     Active Substance: IRINOTECAN
     Indication: COLON CANCER
     Route: 065
  3. FLUOROURACIL. [Concomitant]
     Active Substance: FLUOROURACIL
     Indication: COLON CANCER
     Route: 065
  4. LEVOFOLINATE DE CALCIUM WINTHROP [Concomitant]
     Active Substance: LEVOLEUCOVORIN CALCIUM
     Indication: COLON CANCER
     Route: 065

REACTIONS (3)
  - Proteinuria [Unknown]
  - Decreased appetite [Unknown]
  - Ileus [Unknown]
